FAERS Safety Report 18222647 (Version 2)
Quarter: 2020Q4

REPORT INFORMATION
  Report Type: Spontaneous
  Country: US (occurrence: US)
  Receive Date: 20200902
  Receipt Date: 20201020
  Transmission Date: 20210113
  Serious: Yes (Other)
  Sender: FDA-Public Use
  Company Number: US-FARMAPROD-202008-1121

PATIENT
  Age: 74 Year
  Sex: Male
  Weight: 83.99 kg

DRUGS (12)
  1. LIDO-PRILO CAINE PACK [Concomitant]
     Active Substance: LIDOCAINE\PRILOCAINE
  2. REFRESH OPTIVE [Concomitant]
     Active Substance: CARBOXYMETHYLCELLULOSE SODIUM\GLYCERIN
     Dosage: 0.5%-0.9%
  3. OFLOXACIN. [Concomitant]
     Active Substance: OFLOXACIN
  4. VALTREX [Concomitant]
     Active Substance: VALACYCLOVIR HYDROCHLORIDE
  5. CLARITIN [Concomitant]
     Active Substance: LORATADINE
  6. VALTREX [Concomitant]
     Active Substance: VALACYCLOVIR HYDROCHLORIDE
  7. OXERVATE [Suspect]
     Active Substance: CENEGERMIN-BKBJ
     Indication: HYPOAESTHESIA EYE
  8. BACITRACIN. [Concomitant]
     Active Substance: BACITRACIN
  9. LORAZEPAM. [Concomitant]
     Active Substance: LORAZEPAM
  10. GABAPENTIN. [Concomitant]
     Active Substance: GABAPENTIN
  11. OXERVATE [Suspect]
     Active Substance: CENEGERMIN-BKBJ
     Indication: NEUROTROPHIC KERATOPATHY
     Route: 047
     Dates: start: 202010
  12. OXERVATE [Suspect]
     Active Substance: CENEGERMIN-BKBJ
     Indication: NEUROTROPHIC KERATOPATHY
     Route: 047
     Dates: start: 20200727, end: 20200817

REACTIONS (1)
  - Corneal neovascularisation [Not Recovered/Not Resolved]

NARRATIVE: CASE EVENT DATE: 202008
